FAERS Safety Report 22343275 (Version 3)
Quarter: 2025Q3

REPORT INFORMATION
  Report Type: Spontaneous
  Country: US (occurrence: US)
  Receive Date: 20230519
  Receipt Date: 20250730
  Transmission Date: 20251021
  Serious: No
  Sender: SANOFI AVENTIS
  Company Number: US-SA-SAC20230518001437

PATIENT
  Age: 68 Year
  Sex: Female

DRUGS (1)
  1. DUPIXENT [Suspect]
     Active Substance: DUPILUMAB
     Indication: Dermatitis atopic
     Dosage: 300 MG, QOW
     Route: 058
     Dates: start: 202302

REACTIONS (5)
  - Peripheral swelling [Unknown]
  - Joint swelling [Unknown]
  - Nasopharyngitis [Unknown]
  - Oedema [Unknown]
  - Eczema [Unknown]

NARRATIVE: CASE EVENT DATE: 20230101
